FAERS Safety Report 11687511 (Version 1)
Quarter: 2015Q4

REPORT INFORMATION
  Report Type: Spontaneous
  Country: US (occurrence: US)
  Receive Date: 20151030
  Receipt Date: 20151030
  Transmission Date: 20160304
  Serious: No
  Sender: FDA-Public Use
  Company Number: US-ELI_LILLY_AND_COMPANY-US201510008643

PATIENT
  Sex: Male

DRUGS (2)
  1. HUMALOG [Suspect]
     Active Substance: INSULIN LISPRO
     Indication: PRODUCT USED FOR UNKNOWN INDICATION
     Dosage: 135 U, QD
     Route: 065
  2. HUMULIN N [Concomitant]
     Active Substance: INSULIN HUMAN

REACTIONS (4)
  - Glycosylated haemoglobin increased [Unknown]
  - Drug ineffective [Unknown]
  - Insulin resistance [Unknown]
  - Blood glucose increased [Unknown]

NARRATIVE: CASE EVENT DATE: 20151023
